FAERS Safety Report 6965847-6 (Version None)
Quarter: 2010Q3

REPORT INFORMATION
  Report Type: 
  Country: None (occurrence: None)
  Receive Date: 20100903
  Receipt Date: 20100823
  Transmission Date: 20110219
  Serious: Yes (Other)
  Sender: FDA-Public Use
  Company Number: DE-GENENTECH-305902

PATIENT
  Age: 63 Year
  Sex: Male
  Weight: 92 kg

DRUGS (9)
  1. RITUXIMAB [Suspect]
     Indication: LEUKAEMIA
     Dosage: 750 UNK, UNK
     Route: 042
     Dates: start: 20100629
  2. FLUDARABINE [Suspect]
     Indication: LEUKAEMIA
     Dosage: UNK
     Route: 042
     Dates: start: 20100630
  3. CYCLOPHOSPHAMIDE [Suspect]
     Indication: LEUKAEMIA
     Dosage: UNK
     Route: 042
     Dates: start: 20100630
  4. LYRICA [Concomitant]
     Indication: PRODUCT USED FOR UNKNOWN INDICATION
     Dosage: 75 MG, X3
  5. SIMVASTATIN [Concomitant]
     Indication: PRODUCT USED FOR UNKNOWN INDICATION
     Dosage: UNK
  6. REGULAR INSULIN [Concomitant]
     Indication: PRODUCT USED FOR UNKNOWN INDICATION
     Dosage: UNK
     Dates: start: 19990101
  7. CLEXANE [Concomitant]
     Indication: PRODUCT USED FOR UNKNOWN INDICATION
     Dosage: UNK
     Dates: start: 20100623
  8. BISOPROLOL FUMARATE [Concomitant]
     Indication: PRODUCT USED FOR UNKNOWN INDICATION
     Dosage: UNK
  9. NEULASTA [Concomitant]
     Indication: PRODUCT USED FOR UNKNOWN INDICATION
     Dosage: UNK
     Dates: start: 20100730, end: 20100730

REACTIONS (2)
  - HYPONATRAEMIA [None]
  - HYPOTENSION [None]
